FAERS Safety Report 6681305-0 (Version None)
Quarter: 2010Q2

REPORT INFORMATION
  Report Type: 
  Country: None (occurrence: None)
  Receive Date: 20100414
  Receipt Date: 20100402
  Transmission Date: 20101027
  Serious: No
  Sender: FDA-Public Use
  Company Number: US-BAYER-201018782NA

PATIENT
  Age: 41 Year
  Sex: Female
  Weight: 91 kg

DRUGS (1)
  1. MAGNEVIST [Suspect]
     Indication: NUCLEAR MAGNETIC RESONANCE IMAGING BRAIN
     Dosage: TOTAL DAILY DOSE: 15 ML  UNIT DOSE: 50 ML
     Route: 042

REACTIONS (4)
  - DYSGEUSIA [None]
  - NAUSEA [None]
  - PARAESTHESIA MUCOSAL [None]
  - PARAESTHESIA ORAL [None]
